FAERS Safety Report 4940321-7 (Version None)
Quarter: 2006Q1

REPORT INFORMATION
  Report Type: 
  Country: None (occurrence: None)
  Receive Date: 20060310
  Receipt Date: 20050909
  Transmission Date: 20060701
  Serious: Yes (Hospitalization)
  Sender: FDA-Public Use
  Company Number: US-MERCK-0509USA01688

PATIENT
  Age: 69 Year
  Sex: Female
  Weight: 105 kg

DRUGS (12)
  1. VIOXX [Suspect]
     Indication: MONARTHRITIS
     Route: 048
     Dates: start: 20020101, end: 20041015
  2. FUROSEMIDE [Concomitant]
     Route: 065
     Dates: start: 20010101
  3. BETAMETHASONE DIPROPIONATE AND CLOTRIMAZOLE [Concomitant]
     Route: 065
  4. QUININE SULFATE [Concomitant]
     Route: 065
  5. IBUPROFEN [Concomitant]
     Route: 065
     Dates: start: 20030801
  6. IBUPROFEN [Concomitant]
     Route: 065
  7. AMOXICILLIN [Concomitant]
     Route: 065
  8. ACETAMINOPHEN AND HYDROCODONE BITARTRATE [Concomitant]
     Route: 065
  9. CEPHALEXIN [Concomitant]
     Route: 065
  10. CEFUROXIME [Concomitant]
     Route: 065
  11. LEVAQUIN [Concomitant]
     Route: 065
  12. AMPICILLIN [Concomitant]
     Route: 065

REACTIONS (3)
  - ACUTE MYOCARDIAL INFARCTION [None]
  - ARTERIOSCLEROSIS CORONARY ARTERY [None]
  - OSTEOPOROSIS [None]
